FAERS Safety Report 18484499 (Version 1)
Quarter: 2020Q4

REPORT INFORMATION
  Report Type: Spontaneous
  Country: US (occurrence: US)
  Receive Date: 20201110
  Receipt Date: 20201110
  Transmission Date: 20210114
  Serious: Yes (Other)
  Sender: FDA-Public Use
  Company Number: US-SUN PHARMACEUTICAL INDUSTRIES LTD-2020R1-267216

PATIENT
  Age: 43 Year
  Sex: Male

DRUGS (9)
  1. ALBENDAZOLE. [Suspect]
     Active Substance: ALBENDAZOLE
     Indication: SEIZURE
  2. ALBENDAZOLE. [Suspect]
     Active Substance: ALBENDAZOLE
     Indication: OEDEMA
  3. ALBENDAZOLE. [Suspect]
     Active Substance: ALBENDAZOLE
     Indication: HEADACHE
     Dosage: UNK
     Route: 065
  4. PREDNISONE. [Suspect]
     Active Substance: PREDNISONE
     Indication: HEADACHE
     Dosage: 50 MILLIGRAM, DAILY
     Route: 065
  5. PRAZIQUANTEL. [Suspect]
     Active Substance: PRAZIQUANTEL
     Indication: SEIZURE
  6. PREDNISONE. [Suspect]
     Active Substance: PREDNISONE
     Indication: SEIZURE
  7. PRAZIQUANTEL. [Suspect]
     Active Substance: PRAZIQUANTEL
     Indication: OEDEMA
  8. PREDNISONE. [Suspect]
     Active Substance: PREDNISONE
     Indication: OEDEMA
  9. PRAZIQUANTEL. [Suspect]
     Active Substance: PRAZIQUANTEL
     Indication: HEADACHE
     Dosage: UNK
     Route: 065

REACTIONS (2)
  - Drug ineffective [Unknown]
  - Osteonecrosis [Unknown]
